FAERS Safety Report 5674851-X (Version None)
Quarter: 2008Q2

REPORT INFORMATION
  Report Type: 
  Country: None (occurrence: None)
  Receive Date: 20080307
  Receipt Date: 20070228
  Transmission Date: 20081010
  Serious: Yes (Life-Threatening)
  Sender: FDA-Public Use
  Company Number: 074-163-0312105-00

PATIENT
  Age: 65 Year
  Sex: Female
  Weight: 74.3899 kg

DRUGS (1)
  1. FENTANYL CITRATE [Suspect]
     Indication: ANALGESIA
     Dosage: 10MCG W/10 MIN LOCK, 300MCG/4HR LIMIT, INTRAVENOUS
     Route: 042
     Dates: start: 20070131, end: 20070131

REACTIONS (2)
  - CARDIAC ARREST [None]
  - DEPRESSED LEVEL OF CONSCIOUSNESS [None]
